FAERS Safety Report 16641807 (Version 4)
Quarter: 2019Q3

REPORT INFORMATION
  Report Type: Spontaneous
  Country: IT (occurrence: IT)
  Receive Date: 20190729
  Receipt Date: 20190904
  Transmission Date: 20191004
  Serious: Yes (Life-Threatening, Hospitalization, Other)
  Sender: FDA-Public Use
  Company Number: IT-DRREDDYS-USA/ITL/19/0112466

PATIENT
  Age: 62 Year
  Sex: Male

DRUGS (1)
  1. IMATINIB MESYLATE TABLETS [Suspect]
     Active Substance: IMATINIB MESYLATE
     Indication: GRAFT VERSUS HOST DISEASE IN SKIN

REACTIONS (10)
  - Concomitant disease aggravated [Recovering/Resolving]
  - Pericardial effusion [Recovering/Resolving]
  - Off label use [Unknown]
  - Haemodynamic instability [Unknown]
  - Product use in unapproved indication [Unknown]
  - Lethargy [Recovering/Resolving]
  - Confusional state [Recovering/Resolving]
  - Multiple organ dysfunction syndrome [Recovering/Resolving]
  - Hepatic congestion [Recovering/Resolving]
  - Cardiac tamponade [Recovering/Resolving]
